FAERS Safety Report 8874028 (Version 1)
Quarter: 2012Q4

REPORT INFORMATION
  Report Type: 
  Country: US (occurrence: US)
  Receive Date: 20121030
  Receipt Date: 20121030
  Transmission Date: 20130627
  Serious: No
  Sender: FDA-Public Use
  Company Number: US-ABBOTT-12P-163-0923039-00

PATIENT
  Age: 46 None
  Sex: Female
  Weight: 74.91 kg

DRUGS (5)
  1. LUPRON DEPOT 3.75 MG [Suspect]
     Indication: UTERINE LEIOMYOMA
     Dates: start: 201112, end: 20120303
  2. SYNTHROID [Concomitant]
     Indication: HYPOTHYROIDISM
  3. IRON SUPPLEMENT [Concomitant]
     Indication: PRODUCT USED FOR UNKNOWN INDICATION
  4. TUMS [Concomitant]
     Indication: MINERAL SUPPLEMENTATION
  5. BABY ASPIRIN [Concomitant]
     Indication: THROMBOSIS

REACTIONS (3)
  - Anxiety [Recovering/Resolving]
  - Middle insomnia [Not Recovered/Not Resolved]
  - Stress [Unknown]
